FAERS Safety Report 14350870 (Version 1)
Quarter: 2018Q1

REPORT INFORMATION
  Report Type: Spontaneous
  Country: CH (occurrence: CH)
  Receive Date: 20180104
  Receipt Date: 20180104
  Transmission Date: 20180509
  Serious: Yes (Hospitalization)
  Sender: FDA-Public Use
  Company Number: CH-BAYER-2017-244675

PATIENT
  Age: 29 Year
  Sex: Female
  Weight: 76.3 kg

DRUGS (2)
  1. MIRENA [Suspect]
     Active Substance: LEVONORGESTREL
  2. MIRENA [Suspect]
     Active Substance: LEVONORGESTREL
     Dosage: 20 MCG/24HR, CONT
     Route: 015
     Dates: start: 2013, end: 20171215

REACTIONS (4)
  - Abortion of ectopic pregnancy [None]
  - Peritoneal haemorrhage [None]
  - Drug ineffective [None]
  - Ectopic pregnancy with contraceptive device [None]

NARRATIVE: CASE EVENT DATE: 20171215
